FAERS Safety Report 4849779-5 (Version None)
Quarter: 2005Q4

REPORT INFORMATION
  Report Type: 
  Country: None (occurrence: None)
  Receive Date: 20051115
  Receipt Date: 20050804
  Transmission Date: 20060501
  Serious: No
  Sender: FDA-Public Use
  Company Number: S05-USA-03816-01

PATIENT
  Age: 79 Year
  Sex: Male

DRUGS (12)
  1. NAMENDA [Suspect]
     Indication: PARKINSON'S DISEASE
     Dosage: 15 MG QD PO
     Route: 048
     Dates: start: 20050728, end: 20050803
  2. NAMENDA [Suspect]
     Indication: PARKINSON'S DISEASE
     Dosage: 10 MG BID PO
     Route: 048
     Dates: start: 20050804
  3. NAMENDA [Suspect]
     Indication: PARKINSON'S DISEASE
     Dosage: 5 MG QD PO
     Route: 048
     Dates: start: 20050714, end: 20050720
  4. NAMENDA [Suspect]
     Indication: PARKINSON'S DISEASE
     Dosage: 5 MG BID PO
     Route: 048
     Dates: start: 20050721, end: 20050727
  5. RAZADYNE (GALANTAMINE) [Concomitant]
  6. SINEMET [Concomitant]
  7. PRAVACHOL [Concomitant]
  8. FLUDROCORTISONE ACETATE (FLUDROCORTISONE) [Concomitant]
  9. EFFEXOR [Concomitant]
  10. FLOMAX [Concomitant]
  11. PLAVIX [Concomitant]
  12. REQUIP [Concomitant]

REACTIONS (2)
  - AMNESIA [None]
  - CONFUSIONAL STATE [None]
